FAERS Safety Report 7382094-7 (Version None)
Quarter: 2011Q1

REPORT INFORMATION
  Report Type: 
  Country: None (occurrence: None)
  Receive Date: 20110329
  Receipt Date: 20110328
  Transmission Date: 20110831
  Serious: Yes (Hospitalization, Other)
  Sender: FDA-Public Use
  Company Number: CA-ABBOTT-11P-028-0700276-00

PATIENT
  Sex: Female
  Weight: 46.308 kg

DRUGS (5)
  1. ESTRACE [Concomitant]
     Indication: HORMONE REPLACEMENT THERAPY
     Route: 048
     Dates: start: 19850101
  2. PULMICORT [Concomitant]
     Indication: ASTHMA
     Route: 055
     Dates: start: 20100901
  3. VENTOLIN [Concomitant]
     Indication: ASTHMA
     Route: 055
     Dates: start: 20100901
  4. HUMIRA [Suspect]
     Indication: CROHN'S DISEASE
     Route: 058
     Dates: start: 20070716
  5. LOMOTIL [Concomitant]
     Indication: DIARRHOEA
     Route: 048
     Dates: start: 20080101

REACTIONS (6)
  - NAUSEA [None]
  - WEIGHT DECREASED [None]
  - INTESTINAL OBSTRUCTION [None]
  - INTESTINAL STENOSIS [None]
  - ABDOMINAL DISTENSION [None]
  - PAIN [None]
